FAERS Safety Report 17214743 (Version 1)
Quarter: 2020Q1

REPORT INFORMATION
  Report Type: Spontaneous
  Country: US (occurrence: US)
  Receive Date: 20191229
  Receipt Date: 20191229
  Transmission Date: 20200409
  Serious: No
  Sender: FDA-Public Use
  Company Number: None

PATIENT
  Age: 50 Year
  Sex: Female
  Weight: 60.75 kg

DRUGS (1)
  1. EMGALITY [Suspect]
     Active Substance: GALCANEZUMAB-GNLM
     Indication: MIGRAINE
     Dosage: ?          QUANTITY:1 INJECTION(S);OTHER FREQUENCY:ONCE MONTHLY;OTHER ROUTE:INJECTION IN LEG OR STOMACH?
     Dates: start: 20190918, end: 20191118

REACTIONS (5)
  - Dizziness [None]
  - Rash [None]
  - Fatigue [None]
  - Feeling abnormal [None]
  - Injection site rash [None]

NARRATIVE: CASE EVENT DATE: 20191021
